FAERS Safety Report 14012192 (Version 1)
Quarter: 2017Q3

REPORT INFORMATION
  Report Type: Spontaneous
  Country: CA (occurrence: CA)
  Receive Date: 20170926
  Receipt Date: 20170926
  Transmission Date: 20171128
  Serious: Yes (Death, Other)
  Sender: FDA-Public Use
  Company Number: CA-PFIZER INC-2016568128

PATIENT
  Age: 66 Year
  Sex: Female

DRUGS (1)
  1. XALKORI [Suspect]
     Active Substance: CRIZOTINIB
     Dosage: UNK
     Dates: start: 20161018

REACTIONS (4)
  - Pruritus [Recovering/Resolving]
  - Joint swelling [Recovering/Resolving]
  - Death [Fatal]
  - Paraesthesia [Recovering/Resolving]

NARRATIVE: CASE EVENT DATE: 20170326
